FAERS Safety Report 10074149 (Version 1)
Quarter: 2014Q2

REPORT INFORMATION
  Report Type: Spontaneous
  Country: US (occurrence: US)
  Receive Date: 20140411
  Receipt Date: 20140411
  Transmission Date: 20141212
  Serious: No
  Sender: FDA-Public Use
  Company Number: US-SA-2014SA024502

PATIENT
  Age: 55 Year
  Sex: Female
  Weight: 160 kg

DRUGS (1)
  1. ALLEGRA D [Suspect]
     Indication: SINUSITIS
     Dosage: 240/180 MG
     Route: 048
     Dates: start: 20140220, end: 20140220

REACTIONS (4)
  - Feeling jittery [Not Recovered/Not Resolved]
  - Chest pain [Not Recovered/Not Resolved]
  - Headache [Not Recovered/Not Resolved]
  - Medication error [Unknown]
